FAERS Safety Report 14288034 (Version 1)
Quarter: 2017Q4

REPORT INFORMATION
  Report Type: Spontaneous
  Country: US (occurrence: US)
  Receive Date: 20171214
  Receipt Date: 20171214
  Transmission Date: 20180321
  Serious: Yes (Death, Hospitalization)
  Sender: FDA-Public Use
  Company Number: US-BAYER-2017-238594

PATIENT
  Age: 49 Year
  Sex: Male

DRUGS (6)
  1. LISINOPRIL. [Suspect]
     Active Substance: LISINOPRIL
  2. FUROSEMIDE. [Suspect]
     Active Substance: FUROSEMIDE
  3. COCAINE [Suspect]
     Active Substance: COCAINE
  4. METOPROLOL. [Suspect]
     Active Substance: METOPROLOL
  5. ACETYLSALICYLIC ACID({=100 MG) [Suspect]
     Active Substance: ASPIRIN
  6. RIVAROXABAN [Suspect]
     Active Substance: RIVAROXABAN

REACTIONS (1)
  - Toxicity to various agents [Fatal]
